FAERS Safety Report 19793753 (Version 1)
Quarter: 2021Q3

REPORT INFORMATION
  Report Type: Spontaneous
  Country: JP (occurrence: JP)
  Receive Date: 20210906
  Receipt Date: 20210906
  Transmission Date: 20211014
  Serious: Yes (Hospitalization)
  Sender: FDA-Public Use
  Company Number: JP-ALVOGEN-2021-ALVOGEN-117421

PATIENT
  Age: 48 Year
  Sex: Male

DRUGS (4)
  1. OFLOXACIN. [Suspect]
     Active Substance: OFLOXACIN
     Indication: OTITIS EXTERNA
     Dosage: 0.3% OFLOXACIN?EAR DROPS (TWICE A DAY)
  2. KETOCONAZOLE. [Concomitant]
     Active Substance: KETOCONAZOLE
     Indication: PRURITUS
     Dosage: 2% SOLUTION ONCE IN A DAY.
  3. CEFDITOREN PIVOXIL. [Suspect]
     Active Substance: CEFDITOREN PIVOXIL
     Indication: OTITIS EXTERNA
     Dosage: 3 TIMES A DAY
  4. GARENOXACIN [Suspect]
     Active Substance: GARENOXACIN
     Indication: OTITIS EXTERNA
     Dosage: ONCE IN A DAY

REACTIONS (1)
  - Fungal infection [Recovered/Resolved]
